FAERS Safety Report 22004266 (Version 2)
Quarter: 2023Q1

REPORT INFORMATION
  Report Type: Other
  Country: US (occurrence: None)
  Receive Date: 20230217
  Receipt Date: 20230220
  Transmission Date: 20230418
  Serious: No
  Sender: FDA-Public Use
  Company Number: US-ROCHE-3288628

PATIENT
  Age: 51 Year
  Sex: Female
  Weight: 56.750 kg

DRUGS (5)
  1. OCREVUS [Suspect]
     Active Substance: OCRELIZUMAB
     Indication: Relapsing-remitting multiple sclerosis
     Dosage: 600 MG EVERY 6 MONTH ONGOING: YES, DATE OF TREATMENT: 21/SEP/2022, 18/MAR/2022, 04/MAR/2022, 18/MAR/
     Route: 042
     Dates: start: 202203
  2. PRADAXA [Concomitant]
     Active Substance: DABIGATRAN ETEXILATE MESYLATE
  3. CORAL CALCIUM (UNITED STATES) [Concomitant]
  4. VITAMIN D3 [Concomitant]
     Active Substance: CHOLECALCIFEROL
  5. VITAMIN C [Concomitant]
     Active Substance: ASCORBIC ACID

REACTIONS (1)
  - COVID-19 [Unknown]

NARRATIVE: CASE EVENT DATE: 20220704
